FAERS Safety Report 6012286-0 (Version None)
Quarter: 2008Q4

REPORT INFORMATION
  Report Type: 
  Country: None (occurrence: None)
  Receive Date: 20081218
  Receipt Date: 20081028
  Transmission Date: 20090506
  Serious: No
  Sender: FDA-Public Use
  Company Number: US-ASTRAZENECA-2008UW24174

PATIENT
  Age: 40 Year
  Sex: Female
  Weight: 95.3 kg

DRUGS (3)
  1. SYMBICORT [Suspect]
     Indication: ASTHMA
     Dosage: 160/4.5 MCG, 2 PUFFS ONCE DAILY
     Route: 055
     Dates: start: 20080801
  2. ALBUTEROL [Concomitant]
     Dosage: FOUR TIMES DAILY
     Dates: start: 19930101
  3. DECADRON [Concomitant]
     Dates: end: 20080801

REACTIONS (9)
  - ANOREXIA [None]
  - DISTURBANCE IN ATTENTION [None]
  - DRUG ADMINISTRATION ERROR [None]
  - HEADACHE [None]
  - HEART RATE INCREASED [None]
  - TINNITUS [None]
  - VISION BLURRED [None]
  - VOMITING [None]
  - WEIGHT DECREASED [None]
